FAERS Safety Report 9617534 (Version 1)
Quarter: 2013Q4

REPORT INFORMATION
  Report Type: Spontaneous
  Country: SE (occurrence: SE)
  Receive Date: 20131011
  Receipt Date: 20131011
  Transmission Date: 20140711
  Serious: Yes (Other)
  Sender: FDA-Public Use
  Company Number: SE-GLAXOSMITHKLINE-B0929179A

PATIENT
  Age: 35 Year
  Sex: Female

DRUGS (6)
  1. IMIGRAN [Suspect]
     Indication: HEADACHE
     Route: 042
  2. IMIGRAN [Suspect]
     Indication: HEADACHE
     Route: 045
  3. BOTOX [Suspect]
     Indication: HEADACHE
     Dosage: 25MG UNKNOWN
     Route: 065
     Dates: start: 20130607
  4. ALMOGRAN [Suspect]
     Indication: HEADACHE
     Dosage: 25MG PER DAY
     Route: 048
  5. ALVEDON [Concomitant]
  6. CITODON [Concomitant]

REACTIONS (1)
  - Abortion spontaneous [Recovered/Resolved with Sequelae]
